FAERS Safety Report 4582862-0 (Version None)
Quarter: 2005Q1

REPORT INFORMATION
  Report Type: 
  Country: None (occurrence: None)
  Receive Date: 20050215
  Receipt Date: 20040930
  Transmission Date: 20050727
  Serious: Yes (Other)
  Sender: FDA-Public Use
  Company Number: PHEH2004US10571

PATIENT
  Age: 47 Year
  Sex: Female

DRUGS (7)
  1. ATIVAN [Concomitant]
     Dosage: UNK MG, PRN
  2. MULTI-VITAMINS [Concomitant]
     Dosage: 1 TABLET, QD
  3. LEXAPRO [Concomitant]
     Dosage: 10 MG, QD
  4. XANAX [Concomitant]
     Dosage: 0.5 MG, QD
  5. EXCEDRIN (MIGRAINE) [Concomitant]
  6. FIORINAL [Concomitant]
     Indication: MIGRAINE
  7. GLEEVEC [Suspect]
     Indication: CHRONIC MYELOID LEUKAEMIA
     Dosage: 400 MG, QD
     Route: 048
     Dates: start: 20040916

REACTIONS (10)
  - ARTHRALGIA [None]
  - DRUG INEFFECTIVE [None]
  - FALL [None]
  - FRACTURED SACRUM [None]
  - MARROW HYPERPLASIA [None]
  - NEOPLASM [None]
  - NEURITIS [None]
  - OEDEMA [None]
  - OSTEOPENIA [None]
  - PELVIC PAIN [None]
